FAERS Safety Report 16688373 (Version 1)
Quarter: 2019Q3

REPORT INFORMATION
  Report Type: Spontaneous
  Country: SE (occurrence: SE)
  Receive Date: 20190809
  Receipt Date: 20190809
  Transmission Date: 20191004
  Serious: Yes (Other)
  Sender: FDA-Public Use
  Company Number: SE-PFIZER INC-2019335969

PATIENT
  Age: 53 Year
  Sex: Female

DRUGS (7)
  1. PARACETAMOL [Suspect]
     Active Substance: ACETAMINOPHEN
     Dosage: 1 DF, UNK
     Dates: start: 20190710, end: 20190710
  2. GABAPENTIN. [Suspect]
     Active Substance: GABAPENTIN
     Dosage: 1 DF, UNK
     Dates: start: 20190710, end: 20190710
  3. QUETIAPINE. [Suspect]
     Active Substance: QUETIAPINE
     Dosage: 1 DF, UNK
     Dates: start: 20190710, end: 20190710
  4. LEVAXIN [Suspect]
     Active Substance: LEVOTHYROXINE SODIUM
     Dosage: 1 DF, UNK
     Dates: start: 20190710, end: 20190710
  5. DULOXETINE. [Suspect]
     Active Substance: DULOXETINE
     Dosage: 1 DF, UNK
     Dates: start: 20190710, end: 20190710
  6. STESOLID [Suspect]
     Active Substance: DIAZEPAM
     Dosage: 1 DF, UNK
     Dates: start: 20190710, end: 20190710
  7. XARELTO [Suspect]
     Active Substance: RIVAROXABAN
     Dosage: 1 DF, UNK
     Dates: start: 20190710, end: 20190710

REACTIONS (5)
  - Toxicity to various agents [Unknown]
  - Vomiting [Unknown]
  - Suicidal ideation [Unknown]
  - Fatigue [Unknown]
  - Nausea [Unknown]

NARRATIVE: CASE EVENT DATE: 20190710
